FAERS Safety Report 14097630 (Version 1)
Quarter: 2017Q4

REPORT INFORMATION
  Report Type: Spontaneous
  Country: US (occurrence: US)
  Receive Date: 20171016
  Receipt Date: 20171016
  Transmission Date: 20180321
  Serious: No
  Sender: FDA-Public Use
  Company Number: US-AMGEN-USASP2016183188

PATIENT
  Age: 70 Year
  Sex: Female

DRUGS (1)
  1. PROLIA [Suspect]
     Active Substance: DENOSUMAB
     Indication: OSTEOPOROSIS POSTMENOPAUSAL
     Dosage: 60 MG, Q6MO
     Route: 058
     Dates: start: 201608

REACTIONS (6)
  - Toothache [Recovering/Resolving]
  - Tooth infection [Unknown]
  - Endodontic procedure [Unknown]
  - Cerebral disorder [Unknown]
  - Sleep disorder due to a general medical condition [Unknown]
  - Fear [Unknown]

NARRATIVE: CASE EVENT DATE: 20161218
